FAERS Safety Report 10199111 (Version 1)
Quarter: 2014Q2

REPORT INFORMATION
  Report Type: Report from Study
  Country: US (occurrence: US)
  Receive Date: 20140527
  Receipt Date: 20140527
  Transmission Date: 20141212
  Serious: Yes (Other)
  Sender: FDA-Public Use
  Company Number: PHEH2014US010472

PATIENT
  Sex: Female

DRUGS (7)
  1. TOBI [Suspect]
     Indication: BRONCHIECTASIS
     Dosage: 300 MG, BID, TWICE A DAY
     Route: 055
  2. CIPRO//CIPROFLOXACIN [Concomitant]
     Dosage: UNK UKN, UNK
  3. LEVAQUIN [Concomitant]
     Dosage: UNK UKN, UNK
  4. BACITRACIN [Concomitant]
     Dosage: UNK UKN, UNK
  5. CELECOXIB [Concomitant]
     Dosage: UNK UKN, UNK
  6. CELEBREX [Concomitant]
     Dosage: UNK UKN, UNK
  7. NEOSPORIN OINTMENT [Concomitant]
     Dosage: UNK UKN, UNK

REACTIONS (9)
  - Opportunistic infection [Unknown]
  - Pseudomonas infection [Unknown]
  - Productive cough [Unknown]
  - Cough [Unknown]
  - Pyrexia [Unknown]
  - Productive cough [Unknown]
  - Chills [Unknown]
  - Pathogen resistance [Unknown]
  - Bronchiectasis [Unknown]
